FAERS Safety Report 14973502 (Version 1)
Quarter: 2018Q2

REPORT INFORMATION
  Report Type: Spontaneous
  Country: US (occurrence: US)
  Receive Date: 20180605
  Receipt Date: 20180605
  Transmission Date: 20180711
  Serious: Yes (Other)
  Sender: FDA-Public Use
  Company Number: US-ORION CORPORATION ORION PHARMA-18_00003782

PATIENT
  Age: 10 Year
  Sex: Male

DRUGS (6)
  1. VINCRISTINE [Concomitant]
     Active Substance: VINCRISTINE
     Indication: ANGIOSARCOMA
     Route: 065
  2. VINCRISTINE [Concomitant]
     Active Substance: VINCRISTINE
     Indication: KAPOSI^S SARCOMA
  3. PREDNISONE. [Concomitant]
     Active Substance: PREDNISONE
     Indication: KAPOSI^S SARCOMA
  4. METHOTREXATE. [Suspect]
     Active Substance: METHOTREXATE
     Indication: ANGIOSARCOMA
  5. METHOTREXATE. [Suspect]
     Active Substance: METHOTREXATE
     Indication: KAPOSI^S SARCOMA
     Route: 048
  6. PREDNISONE. [Concomitant]
     Active Substance: PREDNISONE
     Indication: ANGIOSARCOMA
     Dosage: HIGH DOSE
     Route: 065

REACTIONS (1)
  - Toxicity to various agents [Unknown]
